FAERS Safety Report 24988836 (Version 4)
Quarter: 2025Q4

REPORT INFORMATION
  Report Type: Report from Study
  Country: CN (occurrence: CN)
  Receive Date: 20250220
  Receipt Date: 20251017
  Transmission Date: 20260118
  Serious: Yes (Death, Other)
  Sender: ASTELLAS
  Company Number: CN-GILEAD-2025-0703672

PATIENT
  Age: 58 Year
  Sex: Male
  Weight: 67.5 kg

DRUGS (42)
  1. AMPHOTERICIN B [Suspect]
     Active Substance: AMPHOTERICIN B
     Indication: Systemic mycosis
     Dosage: 900.00 MG, QD
     Route: 042
     Dates: start: 20250115, end: 20250120
  2. AMPHOTERICIN B [Suspect]
     Active Substance: AMPHOTERICIN B
     Dosage: 50 MG, QD
     Route: 050
     Dates: start: 20250116, end: 20250116
  3. AMPHOTERICIN B [Suspect]
     Active Substance: AMPHOTERICIN B
     Dosage: 50 MG, QD
     Route: 050
     Dates: start: 20250117, end: 20250117
  4. AMPHOTERICIN B [Suspect]
     Active Substance: AMPHOTERICIN B
     Dosage: 50 MG, QD
     Route: 050
     Dates: start: 20250120, end: 20250120
  5. FEBUXOSTAT [Concomitant]
     Active Substance: FEBUXOSTAT
     Indication: Product used for unknown indication
     Dosage: 40 MG
     Route: 048
     Dates: start: 20250109, end: 20250109
  6. VORICONAZOLE [Concomitant]
     Active Substance: VORICONAZOLE
     Indication: Prophylaxis
     Dosage: .2 G
     Route: 048
     Dates: start: 20250109, end: 20250111
  7. POSACONAZOLE [Concomitant]
     Active Substance: POSACONAZOLE
     Indication: Prophylaxis
     Dosage: .3 G
     Route: 042
     Dates: start: 20250111, end: 20250111
  8. POSACONAZOLE [Concomitant]
     Active Substance: POSACONAZOLE
     Dosage: 0.3 G
     Route: 042
     Dates: start: 20250112, end: 20250115
  9. AMBROXOL HYDROCHLORIDE [Concomitant]
     Active Substance: AMBROXOL HYDROCHLORIDE
     Indication: Product used for unknown indication
     Dosage: 15 MG
     Route: 055
     Dates: start: 20250108, end: 20250109
  10. AMBROXOL HYDROCHLORIDE [Concomitant]
     Active Substance: AMBROXOL HYDROCHLORIDE
     Dosage: 4000 DOSAGE FORM
     Route: 055
     Dates: start: 20250109, end: 20250111
  11. AMBROXOL HYDROCHLORIDE [Concomitant]
     Active Substance: AMBROXOL HYDROCHLORIDE
     Dosage: 15 MG
     Route: 055
     Dates: start: 20250110, end: 20250110
  12. AMMONIUM CHLORIDE [Concomitant]
     Active Substance: AMMONIUM CHLORIDE
     Indication: Product used for unknown indication
     Dosage: 10 ML
     Route: 048
     Dates: start: 20250108, end: 20250111
  13. AMMONIUM CHLORIDE [Concomitant]
     Active Substance: AMMONIUM CHLORIDE
     Dosage: 10 ML
     Route: 048
     Dates: start: 20250111, end: 20250121
  14. SODIUM BICARBONATE [Concomitant]
     Active Substance: SODIUM BICARBONATE
     Indication: Product used for unknown indication
     Dosage: 1 G
     Route: 042
     Dates: start: 20250112, end: 20250112
  15. SODIUM BICARBONATE [Concomitant]
     Active Substance: SODIUM BICARBONATE
     Dosage: 12.5 G
     Route: 050
     Dates: start: 20250109, end: 20250111
  16. SODIUM BICARBONATE [Concomitant]
     Active Substance: SODIUM BICARBONATE
     Dosage: 12.5 G
     Route: 050
     Dates: start: 20250109, end: 20250109
  17. SODIUM BICARBONATE [Concomitant]
     Active Substance: SODIUM BICARBONATE
     Dosage: 2.5 G
     Route: 050
     Dates: start: 20250109, end: 20250110
  18. LACTULOSE [Concomitant]
     Active Substance: LACTULOSE
     Indication: Product used for unknown indication
     Dosage: 40 MG
     Route: 042
     Dates: start: 20250115, end: 20250121
  19. TORSEMIDE [Concomitant]
     Active Substance: TORSEMIDE
     Indication: Product used for unknown indication
     Dosage: 10 MG
     Route: 042
     Dates: start: 20250119, end: 20250119
  20. GLUTATHIONE [Concomitant]
     Active Substance: GLUTATHIONE
     Indication: Product used for unknown indication
     Dosage: 1.8 G
     Route: 042
     Dates: start: 20250109, end: 20250111
  21. GLUTATHIONE [Concomitant]
     Active Substance: GLUTATHIONE
     Dosage: 1.8 G
     Route: 042
     Dates: start: 20250109, end: 20250109
  22. CARBAZOCHROME SODIUM SULFONATE AND SODIUM CHLORIDE [Concomitant]
     Indication: Product used for unknown indication
     Dosage: 80 MG
     Route: 042
     Dates: start: 20250111, end: 20250120
  23. PERAMIVIR [Concomitant]
     Active Substance: PERAMIVIR
     Indication: Product used for unknown indication
     Dosage: .3 G
     Route: 042
     Dates: start: 20250115, end: 20250121
  24. CHYMOTRYPSIN [Concomitant]
     Active Substance: CHYMOTRYPSIN
     Indication: Product used for unknown indication
     Dosage: 4000 DOSAGE FORM
     Route: 055
     Dates: start: 20250108, end: 20250109
  25. COMPOUND SODIUM CHLORIDE [CALCIUM CHLORIDE;POTASSIUM CHLORIDE;SODIUM C [Concomitant]
     Indication: Product used for unknown indication
     Dosage: 500 ML
     Route: 042
     Dates: start: 20250108, end: 20250108
  26. COMPOUND SODIUM CHLORIDE [CALCIUM CHLORIDE;POTASSIUM CHLORIDE;SODIUM C [Concomitant]
     Dosage: 500 ML
     Route: 042
     Dates: start: 20250109, end: 20250109
  27. DEXAMETHASONE SODIUM PHOSPHATE [Concomitant]
     Active Substance: DEXAMETHASONE SODIUM PHOSPHATE
     Indication: Product used for unknown indication
     Route: 065
  28. INDOMETHACIN [Concomitant]
     Active Substance: INDOMETHACIN
     Indication: Product used for unknown indication
     Dosage: 50 MG
     Route: 065
     Dates: start: 20250108, end: 20250108
  29. ACETAMINOPHEN [Concomitant]
     Active Substance: ACETAMINOPHEN
     Indication: Product used for unknown indication
     Dosage: UNK
     Route: 065
     Dates: start: 20250108, end: 20250108
  30. PIPERACILLIN AND TAZOBACTAM [Concomitant]
     Active Substance: PIPERACILLIN SODIUM\TAZOBACTAM SODIUM
     Indication: Product used for unknown indication
     Dosage: UNK
     Route: 042
     Dates: start: 20250108, end: 20250111
  31. PROMETHAZINE HYDROCHLORIDE [Concomitant]
     Active Substance: PROMETHAZINE HYDROCHLORIDE
     Indication: Product used for unknown indication
     Dosage: 25 MG
     Route: 048
     Dates: start: 20250108, end: 20250108
  32. VANCOMYCIN [Concomitant]
     Active Substance: VANCOMYCIN
     Indication: Product used for unknown indication
     Dosage: UNK
     Route: 065
     Dates: start: 20250108, end: 20250111
  33. BUDESONIDE [Concomitant]
     Active Substance: BUDESONIDE
     Indication: Product used for unknown indication
     Dosage: UNK
     Route: 065
     Dates: start: 20250109, end: 20250111
  34. ENTECAVIR [Concomitant]
     Active Substance: ENTECAVIR
     Indication: Product used for unknown indication
     Dosage: 0.5 MG
     Route: 048
     Dates: start: 20250109, end: 20250111
  35. FUROSEMIDE [Concomitant]
     Active Substance: FUROSEMIDE
     Indication: Product used for unknown indication
     Dosage: UNK
     Route: 065
     Dates: start: 20250109, end: 20250109
  36. ALBUMIN HUMAN [Concomitant]
     Active Substance: ALBUMIN HUMAN
     Indication: Product used for unknown indication
     Dosage: UNK
     Route: 065
     Dates: start: 20250109, end: 20250109
  37. IBUPROFEN [Concomitant]
     Active Substance: IBUPROFEN
     Indication: Product used for unknown indication
     Dosage: UNK
     Route: 065
     Dates: start: 20250109, end: 20250109
  38. MOXIFLOXACIN HYDROCHLORIDE [Concomitant]
     Active Substance: MOXIFLOXACIN HYDROCHLORIDE
     Indication: Product used for unknown indication
     Dosage: UNK
     Route: 065
     Dates: start: 20250109, end: 20250109
  39. OMEPRAZOLE MAGNESIUM [Concomitant]
     Active Substance: OMEPRAZOLE MAGNESIUM
     Indication: Product used for unknown indication
     Dosage: UNK
     Route: 065
     Dates: start: 20250109, end: 20250111
  40. OMEPRAZOLE MAGNESIUM [Concomitant]
     Active Substance: OMEPRAZOLE MAGNESIUM
     Dosage: UNK
     Route: 065
     Dates: start: 20250109, end: 20250109
  41. POTASSIUM CHLORIDE [Concomitant]
     Active Substance: POTASSIUM CHLORIDE
     Indication: Product used for unknown indication
     Dosage: UNK
     Route: 065
     Dates: start: 20250109, end: 20250111
  42. POTASSIUM CHLORIDE [Concomitant]
     Active Substance: POTASSIUM CHLORIDE
     Dosage: UNK
     Route: 065
     Dates: start: 20250109, end: 20250109

REACTIONS (3)
  - Acute leukaemia [Fatal]
  - Hepatic failure [Recovering/Resolving]
  - Off label use [Recovered/Resolved]

NARRATIVE: CASE EVENT DATE: 20250116
